FAERS Safety Report 13234972 (Version 2)
Quarter: 2017Q1

REPORT INFORMATION
  Report Type: Report from Study
  Country: JP (occurrence: JP)
  Receive Date: 20170215
  Receipt Date: 20170303
  Transmission Date: 20170428
  Serious: Yes (Hospitalization)
  Sender: FDA-Public Use
  Company Number: JP-PFIZER INC-2017063630

PATIENT
  Age: 61 Year
  Sex: Female
  Weight: 46 kg

DRUGS (6)
  1. AZULFIDINE EN-TABS [Concomitant]
     Active Substance: SULFASALAZINE
     Indication: RHEUMATOID ARTHRITIS
     Dosage: UNK
     Route: 048
     Dates: start: 20160210, end: 20160217
  2. RHEUMATREX [Suspect]
     Active Substance: METHOTREXATE SODIUM
     Dosage: 6 MG, WEEKLY
     Route: 048
     Dates: start: 20160525, end: 20161011
  3. BREDININ [Suspect]
     Active Substance: MIZORIBINE
     Indication: RHEUMATOID ARTHRITIS
     Dosage: 100 MG, 2X/WEEK
     Route: 048
     Dates: end: 20161011
  4. PREDNISOLONE. [Concomitant]
     Active Substance: PREDNISOLONE
     Dosage: 6 MG, DAILY
     Route: 048
  5. RHEUMATREX [Suspect]
     Active Substance: METHOTREXATE SODIUM
     Indication: RHEUMATOID ARTHRITIS
     Dosage: 10 MG, WEEKLY
     Route: 048
     Dates: end: 20160524
  6. NO SUBJECT DRUG [Suspect]
     Active Substance: UNSPECIFIED INGREDIENT
     Dosage: NO DOSE GIVEN

REACTIONS (2)
  - Bone abscess [Recovering/Resolving]
  - Arthritis bacterial [Recovering/Resolving]

NARRATIVE: CASE EVENT DATE: 20161012
